FAERS Safety Report 23438079 (Version 1)
Quarter: 2024Q1

REPORT INFORMATION
  Report Type: Spontaneous
  Country: FR (occurrence: FR)
  Receive Date: 20240124
  Receipt Date: 20240124
  Transmission Date: 20240410
  Serious: Yes (Other)
  Sender: FDA-Public Use
  Company Number: None

PATIENT
  Age: 23 Year
  Sex: Male
  Weight: 75 kg

DRUGS (2)
  1. TRAMADOL [Suspect]
     Active Substance: TRAMADOL\TRAMADOL HYDROCHLORIDE
     Indication: Analgesic intervention supportive therapy
     Dosage: 3 TABLETS
     Route: 048
     Dates: start: 20231207
  2. LAMALINE (ACETAMINOPHEN\CAFFEINE\OPIUM) [Suspect]
     Active Substance: ACETAMINOPHEN\CAFFEINE\OPIUM
     Indication: Back pain
     Dosage: 1 CAPSULE IN THE PIPE
     Route: 055
     Dates: start: 20231207

REACTIONS (3)
  - Drug use disorder [Unknown]
  - Hypotonia [Unknown]
  - Euphoric mood [Unknown]

NARRATIVE: CASE EVENT DATE: 20231207
